FAERS Safety Report 19283461 (Version 1)
Quarter: 2021Q2

REPORT INFORMATION
  Report Type: Spontaneous
  Country: US (occurrence: US)
  Receive Date: 20210521
  Receipt Date: 20210521
  Transmission Date: 20210717
  Serious: Yes (Other)
  Sender: FDA-Public Use
  Company Number: US-DRREDDYS-USA/USA/21/0135769

PATIENT
  Age: 31 Year
  Sex: Female

DRUGS (2)
  1. PREDNISONE. [Suspect]
     Active Substance: PREDNISONE
     Indication: AUTOIMMUNE PERICARDITIS
  2. COLCHICINE. [Suspect]
     Active Substance: COLCHICINE
     Indication: AUTOIMMUNE PERICARDITIS

REACTIONS (1)
  - Drug ineffective [Unknown]
